FAERS Safety Report 14730930 (Version 1)
Quarter: 2018Q2

REPORT INFORMATION
  Report Type: Spontaneous
  Country: PE (occurrence: PE)
  Receive Date: 20180403
  Receipt Date: 20180403
  Transmission Date: 20180711
  Serious: Yes (Disabling)
  Sender: FDA-Public Use
  Company Number: None

PATIENT
  Age: 66 Year
  Sex: Male
  Weight: 70 kg

DRUGS (2)
  1. CLINDAMICINA 300 MG (CLINDAMYCIN) [Suspect]
     Active Substance: CLINDAMYCIN PHOSPHATE
     Indication: TOOTH INFECTION
  2. AMIODARONA [Concomitant]
     Active Substance: AMIODARONE

REACTIONS (4)
  - Aerophagia [None]
  - Tinnitus [None]
  - Insomnia [None]
  - Chest discomfort [None]

NARRATIVE: CASE EVENT DATE: 20180403
